FAERS Safety Report 14955347 (Version 2)
Quarter: 2019Q4

REPORT INFORMATION
  Report Type: Spontaneous
  Country: US (occurrence: US)
  Receive Date: 20180531
  Receipt Date: 20191023
  Transmission Date: 20200122
  Serious: No
  Sender: FDA-Public Use
  Company Number: US-BIOGEN-2018BI00587244

PATIENT
  Sex: Female

DRUGS (1)
  1. TECFIDERA [Suspect]
     Active Substance: DIMETHYL FUMARATE
     Indication: MULTIPLE SCLEROSIS
     Route: 050
     Dates: start: 20170310

REACTIONS (2)
  - Dry mouth [Not Recovered/Not Resolved]
  - Fall [Recovered/Resolved]
